FAERS Safety Report 11966874 (Version 3)
Quarter: 2016Q2

REPORT INFORMATION
  Report Type: Spontaneous
  Country: US (occurrence: US)
  Receive Date: 20160127
  Receipt Date: 20160408
  Transmission Date: 20160815
  Serious: Yes (Other)
  Sender: FDA-Public Use
  Company Number: US-JNJFOC-20160117723

PATIENT
  Sex: Female
  Weight: 82.1 kg

DRUGS (3)
  1. LISINOPRIL. [Concomitant]
     Active Substance: LISINOPRIL
     Indication: BLOOD PRESSURE MEASUREMENT
     Route: 048
  2. XARELTO [Suspect]
     Active Substance: RIVAROXABAN
     Indication: PULMONARY THROMBOSIS
     Route: 048
     Dates: start: 201506
  3. PROTONIX [Concomitant]
     Active Substance: PANTOPRAZOLE SODIUM
     Indication: GASTROOESOPHAGEAL REFLUX DISEASE
     Route: 048

REACTIONS (3)
  - Alopecia [Not Recovered/Not Resolved]
  - Cataract [Recovered/Resolved]
  - Myopia [Not Recovered/Not Resolved]

NARRATIVE: CASE EVENT DATE: 2015
